FAERS Safety Report 17400486 (Version 1)
Quarter: 2020Q1

REPORT INFORMATION
  Report Type: Spontaneous
  Country: US (occurrence: US)
  Receive Date: 20200211
  Receipt Date: 20200211
  Transmission Date: 20200409
  Serious: No
  Sender: FDA-Public Use
  Company Number: US-JNJFOC-20200136483

PATIENT
  Age: 74 Year
  Sex: Female
  Weight: 50.85 kg

DRUGS (1)
  1. TYLENOL [Suspect]
     Active Substance: ACETAMINOPHEN
     Indication: PAIN IN EXTREMITY
     Dosage: 250 MG IN THE MORNING AND 250 MG BEFORE GOING TO BED. ONCE EVERY BLUE MOON OR MAYBE 10 WHOLE PILLS I
     Route: 048
     Dates: start: 20181231, end: 20200121

REACTIONS (1)
  - Wrong technique in product usage process [Unknown]

NARRATIVE: CASE EVENT DATE: 20181231
